FAERS Safety Report 25927326 (Version 1)
Quarter: 2025Q4

REPORT INFORMATION
  Report Type: Report from Study
  Country: US (occurrence: US)
  Receive Date: 20251015
  Receipt Date: 20251015
  Transmission Date: 20260117
  Serious: No
  Sender: ABBVIE
  Company Number: US-ABBVIE-6244848

PATIENT
  Age: 56 Year
  Sex: Female

DRUGS (2)
  1. RINVOQ [Suspect]
     Active Substance: UPADACITINIB
     Indication: Rheumatoid arthritis
     Route: 048
     Dates: start: 2025
  2. RINVOQ [Suspect]
     Active Substance: UPADACITINIB
     Indication: Rheumatoid arthritis
     Route: 048
     Dates: start: 20250321

REACTIONS (10)
  - Joint swelling [Not Recovered/Not Resolved]
  - Abdominal distension [Unknown]
  - Limb discomfort [Unknown]
  - Arthralgia [Unknown]
  - Hot flush [Unknown]
  - Back pain [Unknown]
  - Gait inability [Unknown]
  - Pain in extremity [Not Recovered/Not Resolved]
  - Vitreous floaters [Unknown]
  - Weight increased [Unknown]

NARRATIVE: CASE EVENT DATE: 20250101
